FAERS Safety Report 7814671-0 (Version None)
Quarter: 2011Q4

REPORT INFORMATION
  Report Type: 
  Country: None (occurrence: None)
  Receive Date: 20111014
  Receipt Date: 20111006
  Transmission Date: 20120403
  Serious: Yes (Other)
  Sender: FDA-Public Use
  Company Number: US-BAXTER-2011BH031669

PATIENT
  Age: 2 Year
  Sex: Male

DRUGS (5)
  1. FORANE [Suspect]
     Indication: GENERAL ANAESTHESIA
     Route: 055
  2. ROCURONIUM BROMIDE [Suspect]
     Indication: GENERAL ANAESTHESIA
     Route: 065
  3. CEFAZOLIN [Concomitant]
     Indication: PROPHYLAXIS
     Route: 065
  4. MIDAZOLAM HCL [Concomitant]
     Indication: SEDATION
     Route: 065
  5. FENTANYL [Concomitant]
     Indication: SEDATION
     Route: 065

REACTIONS (1)
  - KOUNIS SYNDROME [None]
